FAERS Safety Report 5035297-0 (Version None)
Quarter: 2006Q2

REPORT INFORMATION
  Report Type: 
  Country: None (occurrence: None)
  Receive Date: 20060627
  Receipt Date: 20060509
  Transmission Date: 20061013
  Serious: Yes (Hospitalization, Other)
  Sender: FDA-Public Use
  Company Number: US-BRISTOL-MYERS SQUIBB COMPANY-13372651

PATIENT
  Age: 75 Year
  Sex: Male

DRUGS (9)
  1. ERBITUX [Suspect]
     Indication: COLORECTAL CANCER
     Dosage: LOADING DOSE OF 900 MG/EVENTS OCCURRED TWO MINUTES INTO THE INFUSION.
     Route: 042
     Dates: start: 20060501, end: 20060501
  2. BENADRYL [Concomitant]
     Indication: PREMEDICATION
  3. TYLENOL (CAPLET) [Concomitant]
     Indication: PREMEDICATION
  4. ATROPINE [Concomitant]
  5. ANZEMET [Concomitant]
  6. CAMPTOSAR [Concomitant]
  7. LEUCOVORIN [Concomitant]
  8. FLUOROURACIL [Concomitant]
  9. AVASTIN [Concomitant]

REACTIONS (3)
  - BLOOD PRESSURE ABNORMAL [None]
  - CARDIAC DISORDER [None]
  - COMA [None]
